FAERS Safety Report 14111167 (Version 1)
Quarter: 2017Q4

REPORT INFORMATION
  Report Type: Spontaneous
  Country: JP (occurrence: JP)
  Receive Date: 20171020
  Receipt Date: 20171020
  Transmission Date: 20180321
  Serious: Yes (Hospitalization, Other)
  Sender: FDA-Public Use
  Company Number: JP-GLAXOSMITHKLINE-JP2017JPN145059

PATIENT
  Age: 70 Year
  Sex: Male
  Weight: 64 kg

DRUGS (4)
  1. LYRICA [Suspect]
     Active Substance: PREGABALIN
     Indication: HERPES ZOSTER
     Dosage: 75 MG, BID
     Route: 048
     Dates: start: 20160921, end: 20160926
  2. ARASENA-A [Concomitant]
     Active Substance: VIDARABINE
     Indication: HERPES ZOSTER
     Dosage: UNK
  3. ZOVIRAX [Suspect]
     Active Substance: ACYCLOVIR
     Indication: HERPES ZOSTER
     Dosage: 250 MG, 1D
     Route: 041
     Dates: start: 20160921, end: 20160926
  4. VALACICLOVIR HYDROCHLORIDE [Suspect]
     Active Substance: VALACYCLOVIR HYDROCHLORIDE
     Indication: HERPES ZOSTER
     Dosage: 1000 MG, TID
     Route: 048
     Dates: start: 20160921, end: 20160926

REACTIONS (3)
  - Acute kidney injury [Recovered/Resolved]
  - Generalised oedema [Recovering/Resolving]
  - Gait disturbance [Recovering/Resolving]

NARRATIVE: CASE EVENT DATE: 20160924
